FAERS Safety Report 4710002-3 (Version None)
Quarter: 2005Q3

REPORT INFORMATION
  Report Type: 
  Country: None (occurrence: None)
  Receive Date: 20050708
  Receipt Date: 20021007
  Transmission Date: 20060218
  Serious: Yes (Hospitalization)
  Sender: FDA-Public Use
  Company Number: PHRM2002FR02528

PATIENT
  Age: 52 Year
  Sex: Male
  Weight: 68 kg

DRUGS (6)
  1. ZOMETA [Suspect]
     Dosage: 4 MG, ONCE/SINGLE
     Route: 042
     Dates: start: 20020722, end: 20020722
  2. TOPALGIC ^HOUDE^ [Suspect]
     Dosage: 100 MG, BID
     Route: 048
     Dates: start: 20020722, end: 20020725
  3. ROFERON [Suspect]
     Dosage: 9 MIU, QW3
     Route: 058
     Dates: start: 20020430, end: 20020725
  4. BI-PROFENID [Suspect]
     Dosage: 300 MG/DAY
     Route: 048
     Dates: start: 20020430, end: 20020725
  5. PROLEUKIN [Suspect]
     Dates: start: 20020716, end: 20020725
  6. IOPAMIDOL [Suspect]
     Indication: COMPUTERISED TOMOGRAM
     Dosage: 61.24 G, ONCE/SINGLE
     Dates: start: 20020710, end: 20020710

REACTIONS (7)
  - ANURIA [None]
  - ASTHENIA [None]
  - BLOOD CREATININE INCREASED [None]
  - DIARRHOEA [None]
  - NAUSEA [None]
  - PSYCHOMOTOR SKILLS IMPAIRED [None]
  - RENAL FAILURE ACUTE [None]
